FAERS Safety Report 8800756 (Version 2)
Quarter: 2014Q2

REPORT INFORMATION
  Report Type: Spontaneous
  Country: US (occurrence: US)
  Receive Date: 20120921
  Receipt Date: 20131017
  Transmission Date: 20141212
  Serious: Yes (Hospitalization)
  Sender: FDA-Public Use
  Company Number: US-PFIZER INC-2012230855

PATIENT
  Sex: 0

DRUGS (1)
  1. VANCOMYCIN HCL [Suspect]
     Indication: STAPHYLOCOCCAL INFECTION
     Dosage: 1500 MG, 2X/DAY
     Route: 042
     Dates: start: 20120822, end: 20120827

REACTIONS (2)
  - Drug level increased [Unknown]
  - Incorrect dose administered [Unknown]
